FAERS Safety Report 6099750-3 (Version None)
Quarter: 2009Q1

REPORT INFORMATION
  Report Type: 
  Country: None (occurrence: None)
  Receive Date: 20090303
  Receipt Date: 20090218
  Transmission Date: 20090719
  Serious: Yes (Hospitalization, Other)
  Sender: FDA-Public Use
  Company Number: US-ROCHE-611163

PATIENT
  Sex: Female

DRUGS (7)
  1. XELODA [Suspect]
     Dosage: STRENGTH: 750 MG/M2, 14 DAYS ON, 07 DAYS OFF
     Route: 048
     Dates: start: 20081018, end: 20081031
  2. XELODA [Suspect]
     Dosage: DOSE INCREASED, STRENGTH: 850 MG/M2, 14 DAYS ON, 07 DAYS OFF
     Route: 048
     Dates: start: 20081108, end: 20081121
  3. FURSEMIDE [Concomitant]
     Route: 048
  4. AVAPRO [Concomitant]
     Route: 048
  5. FLUOXETINE [Concomitant]
     Route: 048
  6. LICODIN [Concomitant]
     Route: 048
  7. GLAUCOMA MEDICATION NOS [Concomitant]
     Dosage: FORM: EYE
     Route: 050

REACTIONS (2)
  - ABDOMINAL MASS [None]
  - ILEAL ULCER [None]
